FAERS Safety Report 4863321-4 (Version None)
Quarter: 2005Q4

REPORT INFORMATION
  Report Type: 
  Country: None (occurrence: None)
  Receive Date: 20051219
  Receipt Date: 20051208
  Transmission Date: 20060501
  Serious: Yes (Death, Disabling)
  Sender: FDA-Public Use
  Company Number: 2005JP002191

PATIENT
  Age: 15 Year
  Sex: Female
  Weight: 45 kg

DRUGS (10)
  1. TACROLIMUS (TACROLIMUS) [Suspect]
     Indication: BONE MARROW TRANSPLANT
     Dosage: SEE IMAGE
     Dates: start: 20040402, end: 20040101
  2. TACROLIMUS (TACROLIMUS) [Suspect]
     Indication: BONE MARROW TRANSPLANT
     Dosage: SEE IMAGE
     Dates: start: 20040223, end: 20040223
  3. TACROLIMUS (TACROLIMUS) [Suspect]
     Indication: BONE MARROW TRANSPLANT
     Dosage: SEE IMAGE
     Dates: start: 20040224, end: 20040227
  4. TACROLIMUS (TACROLIMUS) [Suspect]
     Indication: BONE MARROW TRANSPLANT
     Dosage: SEE IMAGE
     Dates: start: 20040321, end: 20040322
  5. TACROLIMUS (TACROLIMUS) [Suspect]
     Indication: BONE MARROW TRANSPLANT
     Dosage: SEE IMAGE
     Dates: start: 20040323, end: 20040401
  6. CYCLOSPORINE [Suspect]
     Indication: BONE MARROW TRANSPLANT
     Dosage: SEE IMAGE
     Route: 041
     Dates: start: 20040219, end: 20040223
  7. CYCLOSPORINE [Suspect]
     Indication: BONE MARROW TRANSPLANT
     Dosage: SEE IMAGE
     Route: 041
     Dates: start: 20031216, end: 20040318
  8. FUNGUARD (MICAFUNGIN) INJECTION [Concomitant]
  9. GASTER INJECTION [Concomitant]
  10. ZOVIRAX ^BURROUGHS^ (ACICLOVIR) INJECTION [Concomitant]

REACTIONS (15)
  - ASCITES [None]
  - CRYING [None]
  - DEPRESSED LEVEL OF CONSCIOUSNESS [None]
  - DIARRHOEA [None]
  - DYSARTHRIA [None]
  - ENCEPHALOPATHY [None]
  - FEELING ABNORMAL [None]
  - GRAFT VERSUS HOST DISEASE [None]
  - INCONTINENCE [None]
  - MALIGNANT PLEURAL EFFUSION [None]
  - MOUTH BREATHING [None]
  - PANCREATIC CARCINOMA RECURRENT [None]
  - PNEUMONIA [None]
  - PSEUDOMONAS INFECTION [None]
  - RESPIRATORY TRACT INFECTION [None]
